FAERS Safety Report 21466949 (Version 1)
Quarter: 2022Q4

REPORT INFORMATION
  Report Type: Spontaneous
  Country: US (occurrence: None)
  Receive Date: 20221017
  Receipt Date: 20221017
  Transmission Date: 20230112
  Serious: Yes (Other)
  Sender: FDA-Public Use
  Company Number: None

PATIENT
  Age: 13 Year
  Sex: Female
  Weight: 40.4 kg

DRUGS (4)
  1. NUSINERSEN [Suspect]
     Active Substance: NUSINERSEN
     Indication: Spinal muscular atrophy
     Dosage: OTHER FREQUENCY : EVERY 4 MONTHS;?
     Route: 037
  2. FLUTICASONE [Concomitant]
     Active Substance: FLUTICASONE
     Dates: start: 20211021
  3. MELATONIN [Concomitant]
     Active Substance: MELATONIN
  4. ERGOCALCIFEROL [Concomitant]
     Active Substance: ERGOCALCIFEROL
     Dates: start: 20170329

REACTIONS (3)
  - Psychotic disorder [None]
  - Hallucination [None]
  - Mania [None]

NARRATIVE: CASE EVENT DATE: 20221014
